FAERS Safety Report 9929834 (Version 1)
Quarter: 2014Q1

REPORT INFORMATION
  Report Type: Report from Study
  Country: US (occurrence: US)
  Receive Date: 20140227
  Receipt Date: 20140227
  Transmission Date: 20141002
  Serious: No
  Sender: FDA-Public Use
  Company Number: US-ABBVIE-12P-163-1026436-00

PATIENT
  Sex: Male
  Weight: 113.5 kg

DRUGS (1)
  1. HUMIRA [Suspect]
     Indication: PSORIASIS
     Dates: start: 2011

REACTIONS (4)
  - Injection site haemorrhage [Not Recovered/Not Resolved]
  - Alopecia [Not Recovered/Not Resolved]
  - Incorrect dose administered [Unknown]
  - Device malfunction [Unknown]
